FAERS Safety Report 12170759 (Version 1)
Quarter: 2016Q1

REPORT INFORMATION
  Report Type: Spontaneous
  Country: US (occurrence: None)
  Receive Date: 20160310
  Receipt Date: 20160310
  Transmission Date: 20160526
  Serious: No
  Sender: FDA-Public Use
  Company Number: None

PATIENT
  Age: 53 Year
  Sex: Female

DRUGS (1)
  1. AFINITOR [Suspect]
     Active Substance: EVEROLIMUS
     Indication: BREAST CANCER
     Route: 048
     Dates: start: 20151102

REACTIONS (4)
  - Dyspepsia [None]
  - Mood altered [None]
  - Hallucination [None]
  - Anxiety [None]

NARRATIVE: CASE EVENT DATE: 20160308
